FAERS Safety Report 9790781 (Version 3)
Quarter: 2014Q3

REPORT INFORMATION
  Report Type: Report from Study
  Country: US (occurrence: US)
  Receive Date: 20131231
  Receipt Date: 20140710
  Transmission Date: 20150326
  Serious: Yes (Other)
  Sender: FDA-Public Use
  Company Number: PHEH2013US018953

PATIENT
  Sex: Female

DRUGS (18)
  1. NORVASC [Concomitant]
     Active Substance: AMLODIPINE BESYLATE
     Dosage: UNK UKN, UNK
     Route: 048
  2. TOBI [Suspect]
     Active Substance: TOBRAMYCIN
     Dosage: 300 MG, UNK
     Route: 055
     Dates: start: 20140629, end: 20140629
  3. AZTREONAM LYSINE [Concomitant]
     Active Substance: AZTREONAM LYSINE
     Dosage: 75 MG, TID
  4. AZTREONAM. [Concomitant]
     Active Substance: AZTREONAM
     Dosage: UNK UKN, TID, FOR 28 DAYS
     Dates: end: 20140628
  5. HYDROCHLOROTHIAZIDE. [Concomitant]
     Active Substance: HYDROCHLOROTHIAZIDE
     Dosage: UNK UKN, UNK
     Route: 048
  6. LIDODERM [Concomitant]
     Active Substance: LIDOCAINE
     Dosage: UNK UKN, UNK
  7. SINGULAIR [Concomitant]
     Active Substance: MONTELUKAST SODIUM
     Dosage: UNK UKN, UNK
  8. ALBUTEROL. [Concomitant]
     Active Substance: ALBUTEROL
     Dosage: UNK UKN, UNK
  9. BROVANA [Suspect]
     Active Substance: ARFORMOTEROL TARTRATE
     Dosage: UNK
  10. LIPITOR [Concomitant]
     Active Substance: ATORVASTATIN CALCIUM
     Dosage: UNK UKN, UNK
     Route: 048
  11. AZTREONAM. [Concomitant]
     Active Substance: AZTREONAM
     Dosage: UNK
  12. ENBREL [Concomitant]
     Active Substance: ETANERCEPT
     Dosage: UNK UKN, QW
     Route: 058
  13. XYZAL [Concomitant]
     Active Substance: LEVOCETIRIZINE DIHYDROCHLORIDE
     Dosage: UNK UKN, UNK
  14. TOBI [Suspect]
     Active Substance: TOBRAMYCIN
     Indication: PSEUDOMONAS INFECTION
     Dosage: UNK
     Route: 055
  15. TEGRETOL [Concomitant]
     Active Substance: CARBAMAZEPINE
     Dosage: UNK 1/2 TAB, QD
     Route: 048
  16. HYDROCODONE [Concomitant]
     Active Substance: HYDROCODONE
     Dosage: UNK UKN, PRN
     Route: 048
  17. METHOTREXATE [Concomitant]
     Active Substance: METHOTREXATE
     Dosage: UNK UKN, Q WEEKLY
  18. POTASSIUM [Concomitant]
     Active Substance: POTASSIUM
     Dosage: 8 MEQ, BID

REACTIONS (9)
  - Nasopharyngitis [Unknown]
  - Nervousness [Unknown]
  - Oral mucosal blistering [Recovered/Resolved]
  - Deafness [Unknown]
  - Feeling abnormal [Unknown]
  - Stomatitis [Unknown]
  - Cough [Not Recovered/Not Resolved]
  - Pneumonia [Unknown]
  - Fatigue [Unknown]
